FAERS Safety Report 25322643 (Version 1)
Quarter: 2025Q2

REPORT INFORMATION
  Report Type: Spontaneous
  Country: DK (occurrence: DK)
  Receive Date: 20250516
  Receipt Date: 20250516
  Transmission Date: 20250716
  Serious: Yes (Other)
  Sender: NOVO NORDISK
  Company Number: DK-NOVOPROD-1400004

PATIENT
  Age: 59 Year
  Sex: Male

DRUGS (1)
  1. WEGOVY [Suspect]
     Active Substance: SEMAGLUTIDE
     Indication: Product used for unknown indication

REACTIONS (2)
  - Plasma cell myeloma [Unknown]
  - Tenderness [Unknown]

NARRATIVE: CASE EVENT DATE: 20250506
